FAERS Safety Report 8652313 (Version 2)
Quarter: 2014Q2

REPORT INFORMATION
  Report Type: Report from Study
  Country: GB (occurrence: GB)
  Receive Date: 20120706
  Receipt Date: 20140414
  Transmission Date: 20141212
  Serious: Yes (Death)
  Sender: FDA-Public Use
  Company Number: GB-ROCHE-1084146

PATIENT
  Sex: Female
  Weight: 68 kg

DRUGS (1)
  1. TOCILIZUMAB [Suspect]
     Indication: RHEUMATOID ARTHRITIS
     Route: 065
     Dates: start: 20101008, end: 201109

REACTIONS (3)
  - Death [Fatal]
  - Pneumonia [Fatal]
  - Idiopathic pulmonary fibrosis [Fatal]
